FAERS Safety Report 14826191 (Version 2)
Quarter: 2018Q2

REPORT INFORMATION
  Report Type: Other
  Country: CA (occurrence: CA)
  Receive Date: 20180430
  Receipt Date: 20180525
  Transmission Date: 20180711
  Serious: Yes (Hospitalization, Other)
  Sender: FDA-Public Use
  Company Number: CA-APOTEX-2018AP010881

PATIENT
  Sex: Male

DRUGS (5)
  1. RITONAVIR W/TIPRANAVIR [Suspect]
     Active Substance: RITONAVIR\TIPRANAVIR
     Indication: HIV INFECTION
     Dosage: UNK, BID
     Route: 048
  2. LAMIVUDINE. [Suspect]
     Active Substance: LAMIVUDINE
     Indication: HIV INFECTION
     Dosage: 300 MG, QD
     Route: 048
  3. ETRAVIRINE [Suspect]
     Active Substance: ETRAVIRINE
     Indication: HIV INFECTION
     Dosage: 300 MG, QID
     Route: 048
  4. FLUCONAZOLE. [Suspect]
     Active Substance: FLUCONAZOLE
     Indication: HIV INFECTION
     Dosage: 200 MG, QD
     Route: 048
  5. DOLUTEGRAVIR [Suspect]
     Active Substance: DOLUTEGRAVIR
     Indication: HIV INFECTION
     Dosage: 100 MG, QID
     Route: 048

REACTIONS (11)
  - Cytomegalovirus chorioretinitis [Unknown]
  - Gastrointestinal disorder [Unknown]
  - Mycobacterial infection [Unknown]
  - Viral load increased [Unknown]
  - Drug resistance [Unknown]
  - Malabsorption [Unknown]
  - Opportunistic infection [Unknown]
  - Off label use [Unknown]
  - Drug interaction [Unknown]
  - Viraemia [Unknown]
  - CD4 lymphocytes decreased [Unknown]
